FAERS Safety Report 20018664 (Version 2)
Quarter: 2021Q4

REPORT INFORMATION
  Report Type: Spontaneous
  Country: NL (occurrence: NL)
  Receive Date: 20211101
  Receipt Date: 20211116
  Transmission Date: 20220303
  Serious: Yes (Other)
  Sender: FDA-Public Use
  Company Number: NL-BEH-2021134159

PATIENT
  Age: 30 Year
  Sex: Female
  Weight: 76 kg

DRUGS (3)
  1. RHOPHYLAC [Suspect]
     Active Substance: HUMAN RHO(D) IMMUNE GLOBULIN
     Indication: Rhesus incompatibility
     Dosage: UNK UNK, TOT
     Route: 030
     Dates: start: 20210713, end: 20210713
  2. RHOPHYLAC [Suspect]
     Active Substance: HUMAN RHO(D) IMMUNE GLOBULIN
     Indication: Rhesus incompatibility
     Dosage: UNK UNK, TOT
     Route: 030
     Dates: start: 20210713, end: 20210713
  3. VENTOLIN [Suspect]
     Active Substance: ALBUTEROL SULFATE
     Indication: Asthma

REACTIONS (4)
  - Postpartum haemorrhage [Unknown]
  - Uterine atony [Unknown]
  - Expired product administered [Unknown]
  - Maternal exposure during pregnancy [Unknown]

NARRATIVE: CASE EVENT DATE: 20210101
